FAERS Safety Report 4445420-4 (Version None)
Quarter: 2004Q3

REPORT INFORMATION
  Report Type: 
  Country: None (occurrence: None)
  Receive Date: 20040802
  Receipt Date: 20040511
  Transmission Date: 20050211
  Serious: No
  Sender: FDA-Public Use
  Company Number: 2004-116204-NL

PATIENT
  Age: 42 Year
  Sex: Female
  Weight: 55 kg

DRUGS (6)
  1. NUVARING [Suspect]
     Indication: HAEMORRHAGE
     Dosage: DF DAILY VAGINAL
     Route: 067
     Dates: start: 20021001
  2. NUVARING [Suspect]
     Indication: UTERINE LEIOMYOMA
     Dosage: DF DAILY VAGINAL
     Route: 067
     Dates: start: 20021001
  3. ZOLOFT [Concomitant]
  4. ALLEGRA [Concomitant]
  5. DIFLUCAN [Concomitant]
  6. MYCONAZOLE VAGINAL SUPPOSITORIES [Concomitant]

REACTIONS (4)
  - DEVICE FAILURE [None]
  - GENITAL PRURITUS FEMALE [None]
  - MEDICAL DEVICE DISCOMFORT [None]
  - VAGINAL MYCOSIS [None]
